FAERS Safety Report 9528781 (Version 1)
Quarter: 2013Q1

REPORT INFORMATION
  Report Type: Spontaneous
  Country: US (occurrence: None)
  Receive Date: 20130320
  Receipt Date: 20130320
  Transmission Date: 20140127
  Serious: Yes (Death)
  Sender: FDA-Public Use
  Company Number: 075100

PATIENT
  Age: 49 Year
  Sex: Female

DRUGS (4)
  1. ALPRAZOLAM [Suspect]
     Dosage: (INGST+UNK)
  2. METHADONE [Suspect]
     Dosage: (INGST+UNK)?
  3. AMPHETAMINE SALTS [Suspect]
     Dosage: (INGST+UNK)
  4. VENLAFAXINE [Suspect]
     Dosage: (INGST+UNK)

REACTIONS (1)
  - Drug abuse [None]
